FAERS Safety Report 8891394 (Version 1)
Quarter: 2012Q4

REPORT INFORMATION
  Report Type: Spontaneous
  Country: US (occurrence: None)
  Receive Date: 20121105
  Receipt Date: 20121105
  Transmission Date: 20130627
  Serious: Yes (Death)
  Sender: FDA-Public Use
  Company Number: None

PATIENT
  Age: 69 Year
  Sex: Male

DRUGS (11)
  1. REVLIMID [Suspect]
     Indication: MULTIPLE MYELOMA
     Dosage: 10mg  qdx21d/28d, orally
     Route: 048
  2. REVLIMID [Concomitant]
  3. WARFARIN [Suspect]
  4. LASIX [Concomitant]
  5. NORVASC [Concomitant]
  6. SEPTRA DS [Concomitant]
  7. ZOVIRAX [Concomitant]
  8. VORICONAZOLE [Concomitant]
  9. ALLOPURINOL [Concomitant]
  10. OXYCONTIN [Concomitant]
  11. MORPHINE SULFATE [Concomitant]

REACTIONS (2)
  - Disease progression [None]
  - Plasma cell myeloma [None]
